FAERS Safety Report 10472370 (Version 1)
Quarter: 2014Q3

REPORT INFORMATION
  Report Type: Spontaneous
  Country: IE (occurrence: IL)
  Receive Date: 20140924
  Receipt Date: 20140924
  Transmission Date: 20150326
  Serious: Yes (Hospitalization, Other)
  Sender: FDA-Public Use
  Company Number: PHHY2014IL117411

PATIENT
  Sex: Female

DRUGS (2)
  1. CERTICAN [Suspect]
     Active Substance: EVEROLIMUS
     Dosage: 0.5 MG, BID
     Dates: start: 20140810, end: 20140901
  2. TACROLIMUS. [Concomitant]
     Active Substance: TACROLIMUS
     Indication: BLOOD CREATININE INCREASED
     Dosage: UNK UKN, UNK

REACTIONS (7)
  - Generalised oedema [Unknown]
  - Drug ineffective [Unknown]
  - Liver transplant rejection [Unknown]
  - Nephrotic syndrome [Not Recovered/Not Resolved]
  - Hepatic enzyme increased [Recovered/Resolved]
  - Weight increased [Unknown]
  - Proteinuria [Unknown]
